FAERS Safety Report 9160959 (Version 2)
Quarter: 2013Q2

REPORT INFORMATION
  Report Type: Spontaneous
  Country: US (occurrence: US)
  Receive Date: 20130313
  Receipt Date: 20130529
  Transmission Date: 20140414
  Serious: No
  Sender: FDA-Public Use
  Company Number: US-PFIZER INC-2013081056

PATIENT
  Sex: Female
  Weight: 58.96 kg

DRUGS (4)
  1. ARTHROTEC [Suspect]
     Indication: ARTHRITIS
     Dosage: UNK
  2. EXCEDRIN [Suspect]
     Dosage: UNK
  3. MELOXICAM [Suspect]
     Dosage: UNK
  4. ALEVE [Suspect]
     Dosage: UNK

REACTIONS (2)
  - Hepatic enzyme increased [Recovered/Resolved]
  - Drug ineffective [Unknown]
